FAERS Safety Report 16839018 (Version 3)
Quarter: 2019Q4

REPORT INFORMATION
  Report Type: Spontaneous
  Country: PT (occurrence: PT)
  Receive Date: 20190923
  Receipt Date: 20191212
  Transmission Date: 20200122
  Serious: Yes (Hospitalization, Other)
  Sender: FDA-Public Use
  Company Number: PT-MYLANLABS-2019M1085486

PATIENT
  Age: 58 Year
  Sex: Male

DRUGS (8)
  1. LEUCOVORIN                         /00566701/ [Concomitant]
     Active Substance: LEUCOVORIN
     Indication: ADENOCARCINOMA OF COLON
     Dosage: UNK
     Route: 065
  2. OXALIPLATIN. [Suspect]
     Active Substance: OXALIPLATIN
     Dosage: UNK
     Route: 065
     Dates: start: 201303, end: 201306
  3. FLUORURACILO [Concomitant]
     Active Substance: FLUOROURACIL
     Dosage: UNK
     Dates: start: 201303, end: 201306
  4. OXALIPLATIN. [Suspect]
     Active Substance: OXALIPLATIN
     Indication: ADENOCARCINOMA OF COLON
     Dosage: UNK
     Route: 065
  5. LEUCOVORIN                         /00566701/ [Concomitant]
     Active Substance: LEUCOVORIN
     Dosage: UNK
     Route: 065
     Dates: start: 201303, end: 201306
  6. AMOXICILLIN/CLAVULANIC ACID [Suspect]
     Active Substance: AMOXICILLIN\CLAVULANIC ACID
     Dosage: EXPOSED DRUG 7 MONTHS AFTER CHEMO
     Route: 065
     Dates: start: 201312, end: 201312
  7. FLUORURACILO [Concomitant]
     Active Substance: FLUOROURACIL
     Indication: ADENOCARCINOMA OF COLON
     Dosage: UNK
     Route: 065
  8. AMOXICILLIN/CLAVULANIC ACID [Suspect]
     Active Substance: AMOXICILLIN\CLAVULANIC ACID
     Indication: ABDOMINAL WALL HAEMATOMA
     Dosage: UNK
     Route: 065

REACTIONS (6)
  - Portal tract inflammation [Unknown]
  - Blood pressure increased [Unknown]
  - Body temperature decreased [Unknown]
  - Product use in unapproved indication [Unknown]
  - Jaundice cholestatic [Unknown]
  - Drug-induced liver injury [Recovered/Resolved]
